FAERS Safety Report 10779283 (Version 1)
Quarter: 2015Q1

REPORT INFORMATION
  Report Type: Spontaneous
  Country: US (occurrence: None)
  Receive Date: 20150206
  Receipt Date: 20150206
  Transmission Date: 20150721
  Serious: No
  Sender: FDA-Public Use
  Company Number: None

PATIENT
  Age: 31 Year
  Sex: Male
  Weight: 86.18 kg

DRUGS (6)
  1. VIVITROL [Suspect]
     Active Substance: NALTREXONE
     Indication: ALCOHOL USE
     Dosage: 1 INJECTION Q 28 DAYS INTRAMUSCULAR
     Route: 030
     Dates: start: 20150112
  2. NICOTINE GUM [Concomitant]
     Active Substance: NICOTINE
  3. CHOLECALCIFEROL [Concomitant]
     Active Substance: CHOLECALCIFEROL
  4. MIRTAZINE [Concomitant]
  5. IBUPROFEN. [Concomitant]
     Active Substance: IBUPROFEN
  6. SERTRALINE [Concomitant]
     Active Substance: SERTRALINE HYDROCHLORIDE

REACTIONS (2)
  - Erection increased [None]
  - Spontaneous penile erection [None]

NARRATIVE: CASE EVENT DATE: 20150113
